FAERS Safety Report 7409020-6 (Version None)
Quarter: 2011Q2

REPORT INFORMATION
  Report Type: 
  Country: None (occurrence: None)
  Receive Date: 20110412
  Receipt Date: 20110405
  Transmission Date: 20111010
  Serious: Yes (Other)
  Sender: FDA-Public Use
  Company Number: PHHY2011AU04828

PATIENT
  Sex: Female

DRUGS (1)
  1. ESTALIS CONTINUOUS [Suspect]
     Dosage: 50/140
     Route: 062

REACTIONS (2)
  - APPLICATION SITE REACTION [None]
  - VAGINAL HAEMORRHAGE [None]
